FAERS Safety Report 20623404 (Version 1)
Quarter: 2022Q1

REPORT INFORMATION
  Report Type: Spontaneous
  Country: NL (occurrence: NL)
  Receive Date: 20220322
  Receipt Date: 20220322
  Transmission Date: 20220423
  Serious: Yes (Hospitalization)
  Sender: FDA-Public Use
  Company Number: None

PATIENT
  Sex: Female

DRUGS (4)
  1. OXYCODONE HYDROCHLORIDE [Suspect]
     Active Substance: OXYCODONE HYDROCHLORIDE
     Indication: Postoperative analgesia
     Dosage: 5 MG, Q4H (STRENGTH 5MG) (6XDD 1 TABLET)
     Route: 065
     Dates: start: 2019, end: 20211125
  2. OXYCODONE HYDROCHLORIDE [Suspect]
     Active Substance: OXYCODONE HYDROCHLORIDE
     Dosage: 10 MG, DAILY (STRENGTH 5MG) (SLIKTE MAAR 1 OF 2 OXYCODON)
     Route: 065
     Dates: start: 2019
  3. OXYCODONE HYDROCHLORIDE [Suspect]
     Active Substance: OXYCODONE HYDROCHLORIDE
     Dosage: 5 MG, DAILY (STRENGTH 5MG) (SLIKTE MAAR 1 OF 2 OXYCODON)
     Route: 065
     Dates: start: 2019
  4. GABAPENTIN [Concomitant]
     Active Substance: GABAPENTIN
     Dosage: UNK (CAPSULE, 300 MG)

REACTIONS (5)
  - Psychotic disorder [Recovering/Resolving]
  - Confusional state [Recovering/Resolving]
  - Amnesia [Recovering/Resolving]
  - Headache [Recovering/Resolving]
  - Somnolence [Recovering/Resolving]
